FAERS Safety Report 25863254 (Version 1)
Quarter: 2025Q3

REPORT INFORMATION
  Report Type: Spontaneous
  Country: US (occurrence: US)
  Receive Date: 20250930
  Receipt Date: 20250930
  Transmission Date: 20251021
  Serious: Yes (Other)
  Sender: MYLAN
  Company Number: US-MYLANLABS-2025M1081433

PATIENT
  Age: 46 Year
  Sex: Female

DRUGS (24)
  1. PREDNISONE [Suspect]
     Active Substance: PREDNISONE
     Indication: Erdheim-Chester disease
  2. PREDNISONE [Suspect]
     Active Substance: PREDNISONE
     Route: 065
  3. PREDNISONE [Suspect]
     Active Substance: PREDNISONE
     Route: 065
  4. PREDNISONE [Suspect]
     Active Substance: PREDNISONE
  5. TACROLIMUS [Suspect]
     Active Substance: TACROLIMUS
     Indication: Erdheim-Chester disease
  6. TACROLIMUS [Suspect]
     Active Substance: TACROLIMUS
     Route: 061
  7. TACROLIMUS [Suspect]
     Active Substance: TACROLIMUS
     Route: 061
  8. TACROLIMUS [Suspect]
     Active Substance: TACROLIMUS
  9. HYDROQUINONE [Suspect]
     Active Substance: HYDROQUINONE
     Indication: Erdheim-Chester disease
  10. HYDROQUINONE [Suspect]
     Active Substance: HYDROQUINONE
     Route: 065
  11. HYDROQUINONE [Suspect]
     Active Substance: HYDROQUINONE
     Route: 065
  12. HYDROQUINONE [Suspect]
     Active Substance: HYDROQUINONE
  13. KOJIC ACID (KOJIC ACID) [Suspect]
     Active Substance: KOJIC ACID
     Indication: Erdheim-Chester disease
  14. KOJIC ACID (KOJIC ACID) [Suspect]
     Active Substance: KOJIC ACID
     Route: 065
  15. KOJIC ACID (KOJIC ACID) [Suspect]
     Active Substance: KOJIC ACID
     Route: 065
  16. KOJIC ACID (KOJIC ACID) [Suspect]
     Active Substance: KOJIC ACID
  17. VITAMIN C [Suspect]
     Active Substance: ASCORBIC ACID
     Indication: Erdheim-Chester disease
  18. VITAMIN C [Suspect]
     Active Substance: ASCORBIC ACID
     Route: 065
  19. VITAMIN C [Suspect]
     Active Substance: ASCORBIC ACID
     Route: 065
  20. VITAMIN C [Suspect]
     Active Substance: ASCORBIC ACID
  21. COBIMETINIB [Suspect]
     Active Substance: COBIMETINIB
     Indication: Erdheim-Chester disease
     Dosage: 40 MILLIGRAM, QD
  22. COBIMETINIB [Suspect]
     Active Substance: COBIMETINIB
     Dosage: 40 MILLIGRAM, QD
     Route: 048
  23. COBIMETINIB [Suspect]
     Active Substance: COBIMETINIB
     Dosage: 40 MILLIGRAM, QD
     Route: 048
  24. COBIMETINIB [Suspect]
     Active Substance: COBIMETINIB
     Dosage: 40 MILLIGRAM, QD

REACTIONS (3)
  - Drug ineffective for unapproved indication [Unknown]
  - Premature ageing [Unknown]
  - Off label use [Unknown]
